FAERS Safety Report 8013817-1 (Version None)
Quarter: 2011Q4

REPORT INFORMATION
  Report Type: 
  Country: None (occurrence: None)
  Receive Date: 20111229
  Receipt Date: 20111215
  Transmission Date: 20120403
  Serious: Yes (Hospitalization)
  Sender: FDA-Public Use
  Company Number: PHEH2011US010292

PATIENT
  Sex: Male

DRUGS (19)
  1. SANDOSTATIN LAR [Suspect]
     Indication: METASTATIC CARCINOID TUMOUR
     Dosage: 30 MG, QMO
     Route: 030
     Dates: start: 20110131
  2. SANDOSTATIN LAR [Suspect]
     Dosage: 30 MG, QMO
     Route: 030
     Dates: start: 20110325
  3. SANDOSTATIN LAR [Suspect]
     Dosage: 30 MG, QMO
     Route: 030
     Dates: start: 20110520
  4. SANDOSTATIN LAR [Suspect]
     Dosage: 30 MG, QMO
     Route: 030
     Dates: start: 20110715
  5. SANDOSTATIN LAR [Suspect]
     Dosage: 30 MG, QMO
     Route: 030
     Dates: start: 20110912
  6. EVEROLIMUS [Suspect]
     Indication: METASTATIC CARCINOID TUMOUR
  7. LORAZEPAM [Concomitant]
     Dosage: 1 MG, EVERY 6 HOURS AS NEEDED
  8. PROTONIX [Concomitant]
     Dosage: 40 MG, DAILY
     Route: 048
  9. SANDOSTATIN LAR [Suspect]
     Dosage: 30 MG, QMO
     Route: 030
     Dates: start: 20110815
  10. SANDOSTATIN LAR [Suspect]
     Dosage: 30 MG, QMO
     Route: 030
     Dates: start: 20111109
  11. SANDOSTATIN LAR [Suspect]
     Dosage: 30 MG, QMO
     Route: 030
     Dates: start: 20111207
  12. ASPIRIN [Concomitant]
     Dosage: 325 MG, DAILY
  13. SANDOSTATIN LAR [Suspect]
     Dosage: 30 MG, QMO
     Route: 030
     Dates: start: 20110427
  14. SANDOSTATIN LAR [Suspect]
     Dosage: 30 MG, QMO
     Dates: start: 20110617
  15. COLACE [Concomitant]
     Dosage: 100 MG, DAILY
  16. SANDOSTATIN [Suspect]
     Indication: METASTATIC CARCINOID TUMOUR
     Dosage: UNK UKN, UNK
     Dates: start: 20101220, end: 20110901
  17. SANDOSTATIN LAR [Suspect]
     Dosage: 30 MG, QMO
     Route: 030
     Dates: start: 20110228
  18. SANDOSTATIN LAR [Suspect]
     Dosage: 30 MG, QMO
     Route: 030
     Dates: start: 20111012
  19. METOPROLOL SUCCINATE [Concomitant]
     Dosage: 25 MG, DAILY

REACTIONS (8)
  - ABDOMINAL PAIN [None]
  - NEOPLASM MALIGNANT [None]
  - ASTHENIA [None]
  - FATIGUE [None]
  - SMALL INTESTINAL OBSTRUCTION [None]
  - ABDOMINAL DISCOMFORT [None]
  - WEIGHT DECREASED [None]
  - FLATULENCE [None]
